FAERS Safety Report 12991184 (Version 1)
Quarter: 2016Q4

REPORT INFORMATION
  Report Type: Not Available
  Country: US (occurrence: US)
  Receive Date: 20161201
  Receipt Date: 20161201
  Transmission Date: 20170207
  Serious: No
  Sender: FDA-Public Use
  Company Number: US-PURDUE-USA-2016-0134508

PATIENT

DRUGS (1)
  1. OXYCODONE/ ACETAMINOPHEN TABLETS [Suspect]
     Active Substance: ACETAMINOPHEN\OXYCODONE HYDROCHLORIDE
     Indication: ARTHRALGIA
     Dosage: 1 DF (7.5/325MG), PRN (EVERY 7-8 HOURS)
     Route: 048

REACTIONS (2)
  - Drug ineffective [Unknown]
  - Drug effect decreased [Unknown]
